FAERS Safety Report 13511215 (Version 1)
Quarter: 2017Q2

REPORT INFORMATION
  Report Type: Report from Study
  Country: None (occurrence: CA)
  Receive Date: 20170503
  Receipt Date: 20170503
  Transmission Date: 20170830
  Serious: Yes (Death, Hospitalization)
  Sender: FDA-Public Use
  Company Number: CA-ABBVIE-17P-028-1962127-00

PATIENT
  Sex: Male
  Weight: 118.04 kg

DRUGS (1)
  1. LUPRON DEPOT [Suspect]
     Active Substance: LEUPROLIDE ACETATE
     Indication: PROSTATE CANCER
     Route: 030
     Dates: start: 20150903, end: 20150903

REACTIONS (4)
  - Prostate cancer [Fatal]
  - Muscular weakness [Unknown]
  - Fall [Unknown]
  - Colon cancer [Fatal]

NARRATIVE: CASE EVENT DATE: 20160201
